FAERS Safety Report 10932357 (Version 4)
Quarter: 2021Q1

REPORT INFORMATION
  Report Type: Spontaneous
  Country: US (occurrence: US)
  Receive Date: 20150320
  Receipt Date: 20210113
  Transmission Date: 20210419
  Serious: Yes (Other)
  Sender: FDA-Public Use
  Company Number: US-JNJFOC-20140824463

PATIENT
  Age: 6 Year
  Sex: Male

DRUGS (8)
  1. RISPERDAL M?TAB [Suspect]
     Active Substance: RISPERIDONE
     Indication: AGITATION
     Route: 048
  2. RISPERDAL M?TAB [Suspect]
     Active Substance: RISPERIDONE
     Dosage: AS NEEDED
     Route: 048
     Dates: start: 20110830, end: 20110902
  3. RISPERDAL [Suspect]
     Active Substance: RISPERIDONE
     Indication: AUTISM SPECTRUM DISORDER
     Dosage: 0.25, 0.5, 1, 2 MG
     Route: 048
     Dates: start: 20080422, end: 20100518
  4. RISPERDAL [Suspect]
     Active Substance: RISPERIDONE
     Indication: OBSESSIVE-COMPULSIVE DISORDER
     Route: 048
     Dates: start: 2011
  5. RISPERDAL [Suspect]
     Active Substance: RISPERIDONE
     Indication: INTERMITTENT EXPLOSIVE DISORDER
  6. RISPERDAL [Suspect]
     Active Substance: RISPERIDONE
     Indication: BIPOLAR DISORDER
     Route: 048
     Dates: start: 2009
  7. RISPERIDONE. [Suspect]
     Active Substance: RISPERIDONE
     Indication: AUTISM SPECTRUM DISORDER
     Route: 048
     Dates: start: 20091223, end: 20120310
  8. RISPERDAL [Suspect]
     Active Substance: RISPERIDONE
     Indication: OPPOSITIONAL DEFIANT DISORDER
     Route: 048
     Dates: start: 20110830, end: 20110902

REACTIONS (9)
  - Tardive dyskinesia [Unknown]
  - Emotional disorder [Unknown]
  - Akathisia [Unknown]
  - Dyskinesia [Unknown]
  - Parkinsonism [Unknown]
  - Extrapyramidal disorder [Unknown]
  - Dystonia [Unknown]
  - Weight increased [Recovering/Resolving]
  - Gynaecomastia [Unknown]
